FAERS Safety Report 20931656 (Version 1)
Quarter: 2022Q2

REPORT INFORMATION
  Report Type: Spontaneous
  Country: US (occurrence: US)
  Receive Date: 20220608
  Receipt Date: 20220608
  Transmission Date: 20220720
  Serious: No
  Sender: FDA-Public Use
  Company Number: US-GALDERMA-US2022006505

PATIENT

DRUGS (6)
  1. PROACTIV MD ADAPALENE ACNE TREATMENT [Suspect]
     Active Substance: ADAPALENE
     Indication: Acne
     Dosage: 1 DOSAGE FORM, QD, EVERYDAY
     Route: 061
     Dates: end: 202203
  2. Proactiv MD Ultra Gentle Cleanser [Concomitant]
     Indication: Acne
     Dosage: 1 DOSAGE FORM, BID, MORNING AND NIGHT
     Route: 061
     Dates: end: 202203
  3. Proactiv MD Ultra Hydrating Moisturizer [Concomitant]
     Indication: Acne
     Dosage: 1 DOSAGE FORM, QD, EVERYDAY
     Route: 061
     Dates: end: 202203
  4. PROACTIV ACNE BODY WASH [Concomitant]
     Active Substance: SALICYLIC ACID
     Indication: Acne
     Dosage: 1 DOSAGE FORM, QD, EVERYDAY
     Route: 061
     Dates: end: 202203
  5. Proactiv Amazonian Clay Mask [Concomitant]
     Indication: Acne
     Dosage: 1 DOSAGE FORM, QD, EVERYDAY
     Route: 061
     Dates: end: 202203
  6. Proactiv Post Acne Scar Gel [Concomitant]
     Indication: Acne

REACTIONS (5)
  - Dry skin [Recovering/Resolving]
  - Pain of skin [Recovering/Resolving]
  - Acne [Recovering/Resolving]
  - Acne cystic [Recovering/Resolving]
  - Skin burning sensation [Recovering/Resolving]
